FAERS Safety Report 5551496-3 (Version None)
Quarter: 2007Q4

REPORT INFORMATION
  Report Type: 
  Country: None (occurrence: None)
  Receive Date: 20071212
  Receipt Date: 20071206
  Transmission Date: 20080405
  Serious: Yes (Death)
  Sender: FDA-Public Use
  Company Number: JP-AVENTIS-200713310JP

PATIENT
  Age: 66 Year
  Sex: Female

DRUGS (2)
  1. LASIX [Suspect]
     Route: 048
     Dates: start: 20031001, end: 20040701
  2. UNKNOWN DRUG [Suspect]

REACTIONS (3)
  - INTERSTITIAL LUNG DISEASE [None]
  - PANCYTOPENIA [None]
  - PNEUMONIA [None]
